FAERS Safety Report 8129971-7 (Version None)
Quarter: 2012Q1

REPORT INFORMATION
  Report Type: 
  Country: None (occurrence: None)
  Receive Date: 20120210
  Receipt Date: 20120207
  Transmission Date: 20120608
  Serious: Yes (Death, Hospitalization)
  Sender: FDA-Public Use
  Company Number: US-ELI_LILLY_AND_COMPANY-US201201007419

PATIENT
  Age: 79 Year
  Sex: Male
  Weight: 75.283 kg

DRUGS (6)
  1. FOLIC ACID [Concomitant]
     Dosage: 1 DF, UNK
     Route: 048
     Dates: start: 20110401
  2. MORPHINE SULFATE [Concomitant]
     Dosage: UNK, UNKNOWN
  3. SCOPOLAMINE [Concomitant]
     Dosage: UNK, UNKNOWN
  4. VITAMIN B-12 [Concomitant]
     Dosage: 1000 UG, UNK
     Route: 042
     Dates: start: 20110426
  5. ALIMTA [Suspect]
     Indication: NON-SMALL CELL LUNG CANCER
     Dosage: 700 MG, EVERY 21 DAYS
     Route: 042
     Dates: start: 20110426
  6. ATIVAN [Concomitant]
     Dosage: UNK, UNKNOWN

REACTIONS (3)
  - NEOPLASM PROGRESSION [None]
  - ASTHENIA [None]
  - CONFUSIONAL STATE [None]
